FAERS Safety Report 25660326 (Version 1)
Quarter: 2025Q3

REPORT INFORMATION
  Report Type: Spontaneous
  Country: US (occurrence: US)
  Receive Date: 20250808
  Receipt Date: 20250808
  Transmission Date: 20251021
  Serious: No
  Sender: LUPIN
  Company Number: US-LUPIN PHARMACEUTICALS INC.-2025-06802

PATIENT

DRUGS (1)
  1. JENCYCLA [Suspect]
     Active Substance: NORETHINDRONE
     Indication: Product used for unknown indication
     Route: 065

REACTIONS (2)
  - Inappropriate schedule of product administration [Unknown]
  - No adverse event [Unknown]
